FAERS Safety Report 4766134-7 (Version None)
Quarter: 2005Q3

REPORT INFORMATION
  Report Type: 
  Country: None (occurrence: None)
  Receive Date: 20050912
  Receipt Date: 20050325
  Transmission Date: 20060218
  Serious: Yes (Hospitalization)
  Sender: FDA-Public Use
  Company Number: US-MERCK-0503USA04993

PATIENT
  Age: 58 Year
  Sex: Female

DRUGS (2)
  1. VIOXX [Suspect]
     Indication: ARTHRITIS
     Route: 048
     Dates: start: 20020901, end: 20030522
  2. VIOXX [Suspect]
     Route: 048
     Dates: end: 20040930

REACTIONS (2)
  - GASTROINTESTINAL ULCER [None]
  - MYOCARDIAL INFARCTION [None]
